FAERS Safety Report 5764784-2 (Version None)
Quarter: 2008Q2

REPORT INFORMATION
  Report Type: 
  Country: None (occurrence: None)
  Receive Date: 20080605
  Receipt Date: 20080524
  Transmission Date: 20081010
  Serious: Yes (Other)
  Sender: FDA-Public Use
  Company Number: 430038J08USA

PATIENT
  Age: 52 Year
  Sex: Female
  Weight: 95.2554 kg

DRUGS (2)
  1. NOVANTRONE [Suspect]
     Indication: MULTIPLE SCLEROSIS
     Dosage: 1 IN 3 MONTHS
     Dates: start: 20030101, end: 20050101
  2. REBIF [Suspect]
     Indication: MULTIPLE SCLEROSIS
     Dosage: 44 MCG, 3 IN 1 WEEKS, SUBCUTANEOUS
     Route: 058
     Dates: start: 20030714, end: 20050501

REACTIONS (1)
  - ACUTE MYELOID LEUKAEMIA [None]
